FAERS Safety Report 23316511 (Version 1)
Quarter: 2023Q4

REPORT INFORMATION
  Report Type: Spontaneous
  Country: US (occurrence: None)
  Receive Date: 20231219
  Receipt Date: 20231219
  Transmission Date: 20240110
  Serious: No
  Sender: FDA-Public Use
  Company Number: US-ROCHE-3381295

PATIENT
  Sex: Male

DRUGS (1)
  1. HEMLIBRA [Suspect]
     Active Substance: EMICIZUMAB-KXWH
     Indication: Factor VIII deficiency
     Dosage: STRENGTH- 105MG/0.7ML ?1.66ML (250MG) SUBCUTANEOUSLY EVERY 2 WEEKS IN ABDOMEN, THIGHS, OR UPPER ARM
     Route: 058

REACTIONS (1)
  - Haemorrhage [Unknown]
